FAERS Safety Report 22102775 (Version 1)
Quarter: 2023Q1

REPORT INFORMATION
  Report Type: Spontaneous
  Country: SE (occurrence: SE)
  Receive Date: 20230316
  Receipt Date: 20230316
  Transmission Date: 20230418
  Serious: Yes (Other)
  Sender: FDA-Public Use
  Company Number: SE-NALPROPION PHARMACEUTICALS INC.-SE-2023CUR000931

PATIENT
  Age: 47 Year
  Sex: Female
  Weight: 125 kg

DRUGS (5)
  1. BUPROPION HYDROCHLORIDE\NALTREXONE HYDROCHLORIDE [Suspect]
     Active Substance: BUPROPION HYDROCHLORIDE\NALTREXONE HYDROCHLORIDE
     Indication: Overweight
     Dosage: 2 TABLETS 2 TIMES PER DAY
     Route: 048
     Dates: start: 20220716, end: 20220902
  2. COLESTIPOL [Concomitant]
     Active Substance: COLESTIPOL
     Indication: Product used for unknown indication
     Dosage: 1 GRAM 3+2 TABLETS / DAY
     Route: 048
     Dates: start: 20030303
  3. HYDROKLORTIAZID EVOLAN [Concomitant]
     Indication: Product used for unknown indication
     Dosage: 12,5 MG 1 TABLET/DAY
     Route: 048
     Dates: start: 20220701
  4. FERROUS SULFATE [Concomitant]
     Active Substance: FERROUS SULFATE
     Indication: Product used for unknown indication
     Dosage: 100 MG FE2+1 TABLET/DAY
     Route: 048
     Dates: start: 20220307
  5. LOSARTAN POTASSIUM [Concomitant]
     Active Substance: LOSARTAN POTASSIUM
     Indication: Product used for unknown indication
     Dosage: 50 MG, QD
     Route: 048
     Dates: start: 20190101

REACTIONS (9)
  - Swollen tongue [Recovered/Resolved]
  - Amenorrhoea [Recovered/Resolved]
  - Flatulence [Recovering/Resolving]
  - Nausea [Recovered/Resolved]
  - Dizziness [Recovered/Resolved]
  - Hyperhidrosis [Recovered/Resolved]
  - Tinnitus [Recovering/Resolving]
  - Eructation [Recovering/Resolving]
  - Fatigue [Recovered/Resolved]

NARRATIVE: CASE EVENT DATE: 20220719
